FAERS Safety Report 8215116-1 (Version None)
Quarter: 2012Q1

REPORT INFORMATION
  Report Type: 
  Country: None (occurrence: None)
  Receive Date: 20120314
  Receipt Date: 20120305
  Transmission Date: 20120608
  Serious: Yes (Other)
  Sender: FDA-Public Use
  Company Number: AUR-APL-2012-00682

PATIENT
  Sex: Female

DRUGS (2)
  1. VENLAFAXINE [Suspect]
     Indication: BIPOLAR DISORDER
  2. EFFEXOR XR [Suspect]
     Indication: BIPOLAR DISORDER
     Dosage: 75 MG (37.5 MG,2 IN 1 D),ORAL
     Route: 048

REACTIONS (9)
  - MENTAL DISORDER [None]
  - SKIN DISCOLOURATION [None]
  - ILL-DEFINED DISORDER [None]
  - GENERAL PHYSICAL CONDITION ABNORMAL [None]
  - RENAL FAILURE [None]
  - GASTROINTESTINAL DISORDER [None]
  - CARDIAC DISORDER [None]
  - HEPATIC FAILURE [None]
  - PSORIASIS [None]
